FAERS Safety Report 6893560-2 (Version None)
Quarter: 2010Q3

REPORT INFORMATION
  Report Type: 
  Country: None (occurrence: None)
  Receive Date: 20100731
  Receipt Date: 20091014
  Transmission Date: 20110219
  Serious: No
  Sender: FDA-Public Use
  Company Number: US-PFIZER INC-2009267125

PATIENT
  Sex: Female
  Weight: 72.6 kg

DRUGS (9)
  1. LIPITOR [Suspect]
     Dosage: 20 MG, 1X/DAY
     Route: 048
     Dates: start: 20040101
  2. NYSTATIN [Concomitant]
     Indication: ARTERIAL DISORDER
     Dosage: 500 MG, 1X/DAY
  3. ATACAND [Concomitant]
     Indication: ARTERIAL DISORDER
     Dosage: 16 MG, UNK
  4. METFORMIN [Concomitant]
     Dosage: 50 MG, 1X/DAY
  5. CALCIUM [Concomitant]
     Dosage: UNK
  6. VITAMIN D [Concomitant]
     Dosage: UNK
  7. AMBIEN CR [Concomitant]
     Dosage: 12.5 MG, AS NEEDED
  8. MIRALAX [Concomitant]
     Dosage: UNK
  9. ACETYLSALICYLIC ACID [Concomitant]
     Dosage: 81 MG, UNK

REACTIONS (1)
  - DRUG INEFFECTIVE [None]
